FAERS Safety Report 7538399 (Version 4)
Quarter: 2014Q3

REPORT INFORMATION
  Report Type: Spontaneous
  Country: US (occurrence: US)
  Receive Date: 20100812
  Receipt Date: 20140704
  Transmission Date: 20150326
  Serious: Yes (Other)
  Sender: FDA-Public Use
  Company Number: US-JNJFOC-20100502663

PATIENT
  Age: 35 Year
  Sex: Female
  Weight: 143.79 kg

DRUGS (1)
  1. LEVAQUIN [Suspect]
     Active Substance: LEVOFLOXACIN
     Indication: WOUND INFECTION
     Route: 048

REACTIONS (6)
  - Carpal tunnel syndrome [Unknown]
  - Meniscus injury [Unknown]
  - Rotator cuff syndrome [Unknown]
  - Trigger finger [Recovering/Resolving]
  - Tendonitis [Unknown]
  - Bursitis [Unknown]

NARRATIVE: CASE EVENT DATE: 200802
